FAERS Safety Report 12365461 (Version 1)
Quarter: 2016Q2

REPORT INFORMATION
  Report Type: Report from Study
  Country: CO (occurrence: CO)
  Receive Date: 20160512
  Receipt Date: 20160512
  Transmission Date: 20160815
  Serious: Yes (Death)
  Sender: FDA-Public Use
  Company Number: CO-ABBVIE-16P-036-1626968-00

PATIENT
  Age: 48 Year
  Sex: Male

DRUGS (1)
  1. ZEMPLAR [Suspect]
     Active Substance: PARICALCITOL
     Indication: HYPERPARATHYROIDISM SECONDARY
     Dosage: POST DIALYSIS
     Route: 042
     Dates: start: 20141218, end: 20160421

REACTIONS (3)
  - Pyrexia [Fatal]
  - Pneumonia bacterial [Fatal]
  - Productive cough [Fatal]

NARRATIVE: CASE EVENT DATE: 20160506
